FAERS Safety Report 19583938 (Version 1)
Quarter: 2021Q3

REPORT INFORMATION
  Report Type: Spontaneous
  Country: ES (occurrence: ES)
  Receive Date: 20210720
  Receipt Date: 20210720
  Transmission Date: 20211014
  Serious: Yes (Death, Hospitalization, Other)
  Sender: FDA-Public Use
  Company Number: ES-PFIZER INC-2021847915

PATIENT
  Age: 83 Year
  Sex: Male
  Weight: 84 kg

DRUGS (11)
  1. APIXABAN [Suspect]
     Active Substance: APIXABAN
     Indication: ATRIAL FIBRILLATION
     Dosage: 5 MILLIGRAM, QD
     Route: 048
     Dates: start: 20210212, end: 20210212
  2. ACETYLSALICYLIC ACID [Suspect]
     Active Substance: ASPIRIN
     Dosage: 1 G
     Route: 048
     Dates: start: 20210224, end: 20210301
  3. PACLITAXEL. [Suspect]
     Active Substance: PACLITAXEL
     Indication: NON-SMALL CELL LUNG CANCER STAGE III
     Dosage: DOSAGE TEXT : UNK ;PHARMACEUTICAL FORM (DOSAGE FORM): SOLUTION FOR INFUSION
     Route: 042
     Dates: start: 20191217, end: 20200128
  4. ACETYLSALICYLIC ACID [Suspect]
     Active Substance: ASPIRIN
     Indication: PERICARDIAL EFFUSION
     Dosage: 1 G, QD
     Route: 048
     Dates: start: 20210217, end: 20210217
  5. ACETYLSALICYLIC ACID [Suspect]
     Active Substance: ASPIRIN
     Dosage: 1 G
     Route: 048
     Dates: start: 20210220, end: 20210220
  6. ACETYLSALICYLIC ACID [Suspect]
     Active Substance: ASPIRIN
     Dosage: 1 G
     Route: 048
     Dates: start: 20210221, end: 20210224
  7. BLINDED THERAPY [Suspect]
     Active Substance: INVESTIGATIONAL PRODUCT
     Indication: NON-SMALL CELL LUNG CANCER STAGE III
     Dosage: Q2W; SOLUTION FOR INFUSION
     Route: 042
     Dates: start: 20191217, end: 20210129
  8. APIXABAN [Suspect]
     Active Substance: APIXABAN
     Dosage: 5 MILLIGRAM, QD
     Route: 048
     Dates: start: 20210223, end: 20210224
  9. ACETYLSALICYLIC ACID [Suspect]
     Active Substance: ASPIRIN
     Dosage: 1 G, QID
     Route: 048
     Dates: start: 20210219, end: 20210219
  10. CARBOPLATIN. [Suspect]
     Active Substance: CARBOPLATIN
     Indication: NON-SMALL CELL LUNG CANCER STAGE III
     Dosage: DOSAGE TEXT :UNK;PHARMACEUTICAL FORM (DOSAGE FORM) :SOLUTION FOR INFUSION
     Route: 042
     Dates: start: 20191217, end: 20200128
  11. ACETYLSALICYLIC ACID [Suspect]
     Active Substance: ASPIRIN
     Dosage: 1 G
     Route: 048
     Dates: start: 20210218, end: 20210218

REACTIONS (2)
  - Off label use [Unknown]
  - Cerebral haemorrhage [Fatal]

NARRATIVE: CASE EVENT DATE: 20210212
